FAERS Safety Report 12101738 (Version 1)
Quarter: 2016Q1

REPORT INFORMATION
  Report Type: Spontaneous
  Country: KR (occurrence: KR)
  Receive Date: 20160222
  Receipt Date: 20160222
  Transmission Date: 20160526
  Serious: Yes (Hospitalization)
  Sender: FDA-Public Use
  Company Number: KR-PFIZER INC-2016104078

PATIENT
  Age: 16 Year
  Sex: Male
  Weight: 64 kg

DRUGS (1)
  1. SOMATROPIN [Suspect]
     Active Substance: SOMATROPIN
     Dosage: 8 IU, DAILY
     Route: 058

REACTIONS (1)
  - Juvenile idiopathic arthritis [Recovered/Resolved]
